FAERS Safety Report 23527814 (Version 1)
Quarter: 2024Q1

REPORT INFORMATION
  Report Type: Other
  Country: PT (occurrence: PT)
  Receive Date: 20240215
  Receipt Date: 20240215
  Transmission Date: 20240410
  Serious: Yes (Hospitalization)
  Sender: FDA-Public Use
  Company Number: PT-B.Braun Medical Inc.-2153280

PATIENT
  Age: 36 Year
  Sex: Female

DRUGS (2)
  1. DEXTROSE AND SODIUM CHLORIDE [Suspect]
     Active Substance: DEXTROSE MONOHYDRATE\SODIUM CHLORIDE
  2. ICODEXTRIN [Suspect]
     Active Substance: ICODEXTRIN

REACTIONS (3)
  - Polyhydramnios [Recovering/Resolving]
  - Off label use [Recovering/Resolving]
  - Maternal exposure during pregnancy [Recovering/Resolving]
